FAERS Safety Report 8480160-6 (Version None)
Quarter: 2012Q2

REPORT INFORMATION
  Report Type: 
  Country: None (occurrence: None)
  Receive Date: 20120629
  Receipt Date: 20120625
  Transmission Date: 20120825
  Serious: Yes (Other)
  Sender: FDA-Public Use
  Company Number: JP-MERCK-1206USA04977

PATIENT
  Age: 60 Year
  Sex: Female

DRUGS (4)
  1. AMARYL [Concomitant]
     Route: 065
     Dates: start: 20090201
  2. METFORMIN HCL [Concomitant]
     Route: 065
  3. ACTOS [Concomitant]
     Route: 065
  4. JANUVIA [Suspect]
     Indication: TYPE 2 DIABETES MELLITUS
     Route: 048
     Dates: start: 20100119

REACTIONS (1)
  - GASTRIC CANCER [None]
